FAERS Safety Report 26066872 (Version 1)
Quarter: 2025Q4

REPORT INFORMATION
  Report Type: Spontaneous
  Country: US (occurrence: US)
  Receive Date: 20251119
  Receipt Date: 20251119
  Transmission Date: 20260117
  Serious: No
  Sender: AMPHASTAR
  Company Number: US-Amphastar Pharmaceuticals, Inc.-2188936

PATIENT

DRUGS (1)
  1. GLUCAGON [Suspect]
     Active Substance: GLUCAGON
     Indication: Blood glucose

REACTIONS (1)
  - No adverse event [Recovered/Resolved]
